FAERS Safety Report 15018151 (Version 1)
Quarter: 2018Q2

REPORT INFORMATION
  Report Type: Spontaneous
  Country: US (occurrence: US)
  Receive Date: 20180523
  Receipt Date: 20180523
  Transmission Date: 20180711
  Serious: Yes (Hospitalization)
  Sender: FDA-Public Use
  Company Number: None

PATIENT
  Age: 71 Year
  Sex: Female

DRUGS (1)
  1. AMPYRA [Suspect]
     Active Substance: DALFAMPRIDINE
     Indication: MULTIPLE SCLEROSIS
     Route: 048
     Dates: start: 20180422

REACTIONS (7)
  - Accidental overdose [None]
  - Klebsiella test positive [None]
  - Joint injury [None]
  - Escherichia test positive [None]
  - Pain in extremity [None]
  - Urinary tract infection [None]
  - Culture urine positive [None]

NARRATIVE: CASE EVENT DATE: 20180508
